FAERS Safety Report 24805036 (Version 1)
Quarter: 2025Q1

REPORT INFORMATION
  Report Type: Spontaneous
  Country: CN (occurrence: CN)
  Receive Date: 20250103
  Receipt Date: 20250103
  Transmission Date: 20250408
  Serious: Yes (Hospitalization)
  Sender: MERCK
  Company Number: CN-009507513-2412CHN010340

PATIENT
  Age: 39 Year
  Sex: Female
  Weight: 48.5 kg

DRUGS (1)
  1. CILASTATIN SODIUM\IMIPENEM [Suspect]
     Active Substance: CILASTATIN SODIUM\IMIPENEM
     Indication: Haematological infection
     Dosage: 0.5 GRAM, Q12H
     Route: 041
     Dates: start: 20241122, end: 20241125

REACTIONS (3)
  - Rash pruritic [Recovered/Resolved]
  - Drug eruption [Unknown]
  - Erythema [Unknown]

NARRATIVE: CASE EVENT DATE: 20241123
